FAERS Safety Report 19175989 (Version 1)
Quarter: 2021Q2

REPORT INFORMATION
  Report Type: Spontaneous
  Country: JP (occurrence: JP)
  Receive Date: 20210423
  Receipt Date: 20210423
  Transmission Date: 20210717
  Serious: Yes (Hospitalization, Other)
  Sender: FDA-Public Use
  Company Number: JP-FERRINGPH-2021FE02460

PATIENT
  Age: 55 Year
  Sex: Male

DRUGS (1)
  1. MINIRINMELT [Suspect]
     Active Substance: DESMOPRESSIN ACETATE
     Indication: DIABETES INSIPIDUS
     Dosage: 120 UG, 3 TIMES DAILY
     Route: 048
     Dates: start: 2015

REACTIONS (5)
  - Urine output increased [Unknown]
  - Nephrolithiasis [Unknown]
  - Limb fracture [Unknown]
  - Diabetes mellitus [Unknown]
  - Therapeutic response decreased [Unknown]
